FAERS Safety Report 10566427 (Version 1)
Quarter: 2014Q4

REPORT INFORMATION
  Report Type: Spontaneous
  Country: US (occurrence: US)
  Receive Date: 20141105
  Receipt Date: 20141105
  Transmission Date: 20150529
  Serious: Yes (Hospitalization, Other)
  Sender: FDA-Public Use
  Company Number: US-GILEAD-2014-0121001

PATIENT
  Age: 64 Year
  Sex: Female

DRUGS (18)
  1. LASIX [Concomitant]
     Active Substance: FUROSEMIDE
  2. KLOR-CON [Concomitant]
     Active Substance: POTASSIUM CHLORIDE
  3. METOPROLOL [Concomitant]
     Active Substance: METOPROLOL
  4. PRILOSEC [Concomitant]
     Active Substance: OMEPRAZOLE MAGNESIUM
  5. FERROUS SULFATE [Concomitant]
     Active Substance: FERROUS SULFATE\FERROUS SULFATE, DRIED
  6. GEMFIBROZIL. [Concomitant]
     Active Substance: GEMFIBROZIL
  7. LANTUS [Concomitant]
     Active Substance: INSULIN GLARGINE
  8. NOVOLOG [Concomitant]
     Active Substance: INSULIN ASPART
  9. COUMADIN [Concomitant]
     Active Substance: WARFARIN SODIUM
  10. HYDRALAZINE [Concomitant]
     Active Substance: HYDRALAZINE HYDROCHLORIDE
  11. METFORMIN [Concomitant]
     Active Substance: METFORMIN HYDROCHLORIDE
  12. ZETIA [Concomitant]
     Active Substance: EZETIMIBE
  13. ASPIRIN                            /00002701/ [Concomitant]
     Active Substance: ASPIRIN
  14. MELOXICAM. [Concomitant]
     Active Substance: MELOXICAM
  15. GLIPIZIDE. [Concomitant]
     Active Substance: GLIPIZIDE
  16. LETAIRIS [Suspect]
     Active Substance: AMBRISENTAN
     Indication: PULMONARY HYPERTENSION
     Dosage: 10 MG, QD
     Route: 065
     Dates: start: 20131002
  17. NABUMETONE. [Concomitant]
     Active Substance: NABUMETONE
  18. SULAR [Concomitant]
     Active Substance: NISOLDIPINE

REACTIONS (4)
  - Urinary tract infection [Recovered/Resolved]
  - Cyst rupture [Recovered/Resolved]
  - Sepsis [Recovered/Resolved]
  - Transfusion [Recovered/Resolved]

NARRATIVE: CASE EVENT DATE: 20140926
